FAERS Safety Report 15359707 (Version 1)
Quarter: 2018Q3

REPORT INFORMATION
  Report Type: Spontaneous
  Country: GB (occurrence: GB)
  Receive Date: 20180907
  Receipt Date: 20180907
  Transmission Date: 20181010
  Serious: Yes (Hospitalization, Other)
  Sender: FDA-Public Use
  Company Number: GB-TEVA-2018-GB-952264

PATIENT
  Age: 53 Year
  Sex: Female
  Weight: 60 kg

DRUGS (8)
  1. METOCLOPRAMIDE. [Concomitant]
     Active Substance: METOCLOPRAMIDE
     Dosage: 1 OR 2 FOUR TIMES DAILY AS NEEDED.
     Route: 065
  2. ONDANSETRON HYDROCHLORIDE. [Concomitant]
     Active Substance: ONDANSETRON HYDROCHLORIDE
     Dosage: 8 MILLIGRAM DAILY; IN THE MORNING. DAYS 1, 2 AND 3
     Route: 065
  3. CAPECITABINE. [Suspect]
     Active Substance: CAPECITABINE
     Dosage: 300 MILLIGRAM DAILY; TAKEN 3 CYCLES TOTAL.
     Route: 048
     Dates: start: 201806, end: 201807
  4. CAPECITABINE. [Suspect]
     Active Substance: CAPECITABINE
     Indication: COLORECTAL CANCER
     Dosage: 3000 MILLIGRAM DAILY; TAKEN 2 CYCLES TOTAL.
     Route: 048
     Dates: start: 201806, end: 201807
  5. LOPERAMIDE [Concomitant]
     Active Substance: LOPERAMIDE
     Dosage: MAX 16MG/24HOURS
     Route: 065
  6. OXALIPLATIN. [Concomitant]
     Active Substance: OXALIPLATIN
     Dosage: DAYS 1, 2 AND 3
     Route: 042
  7. DEXAMETHASONE. [Concomitant]
     Active Substance: DEXAMETHASONE
     Dosage: 8 MILLIGRAM DAILY; MORNING. 3 CYCLES.
     Route: 065
  8. DIFFLAM [Concomitant]
     Active Substance: BENZYDAMINE HYDROCHLORIDE
     Indication: STOMATITIS
     Dosage: THREE TIMES DAILY AS NEEDED.
     Route: 065

REACTIONS (3)
  - Left ventricular failure [Unknown]
  - Cardiotoxicity [Unknown]
  - Dyspnoea [Unknown]

NARRATIVE: CASE EVENT DATE: 201807
